FAERS Safety Report 12568196 (Version 2)
Quarter: 2016Q3

REPORT INFORMATION
  Report Type: Spontaneous
  Country: JP (occurrence: JP)
  Receive Date: 20160718
  Receipt Date: 20160720
  Transmission Date: 20161109
  Serious: Yes (Death, Other)
  Sender: FDA-Public Use
  Company Number: JP-SA-2016SA128861

PATIENT
  Sex: Female

DRUGS (5)
  1. 5-FU [Concomitant]
     Active Substance: FLUOROURACIL
     Route: 065
     Dates: start: 2014, end: 2014
  2. ELPLAT [Suspect]
     Active Substance: OXALIPLATIN
     Indication: COLON CANCER
     Dosage: INJECTION
     Route: 041
     Dates: start: 2014, end: 2014
  3. ASPIRIN. [Concomitant]
     Active Substance: ASPIRIN
     Route: 048
  4. CALCIUM LEVOFOLINATE [Concomitant]
     Active Substance: LEVOLEUCOVORIN CALCIUM
     Route: 065
     Dates: start: 2014, end: 2014
  5. AVASTIN [Concomitant]
     Active Substance: BEVACIZUMAB
     Route: 065
     Dates: start: 2014, end: 2014

REACTIONS (3)
  - Vascular stent thrombosis [Unknown]
  - Peripheral arterial occlusive disease [Unknown]
  - Acute myocardial infarction [Fatal]

NARRATIVE: CASE EVENT DATE: 2014
